FAERS Safety Report 6012282-3 (Version None)
Quarter: 2008Q4

REPORT INFORMATION
  Report Type: 
  Country: None (occurrence: None)
  Receive Date: 20081216
  Receipt Date: 20080131
  Transmission Date: 20090506
  Serious: Yes (Life-Threatening, Hospitalization)
  Sender: FDA-Public Use
  Company Number: US-WYE-H02421408

PATIENT
  Age: 31 Year
  Sex: Female

DRUGS (4)
  1. EFFEXOR XR [Suspect]
     Indication: MAJOR DEPRESSION
     Dosage: 75 MG 1X PER 1 DAY, ORAL
     Route: 048
     Dates: start: 20080121, end: 20080128
  2. DOXYCYCLINE [Concomitant]
  3. PROTONIX [Concomitant]
  4. LEVAQUIN [Concomitant]

REACTIONS (1)
  - SUICIDAL IDEATION [None]
